FAERS Safety Report 8763997 (Version 3)
Quarter: 2012Q4

REPORT INFORMATION
  Report Type: 
  Country: GB (occurrence: GB)
  Receive Date: 20120831
  Receipt Date: 20121023
  Transmission Date: 20130627
  Serious: Yes (Death, Other)
  Sender: FDA-Public Use
  Company Number: GB-JNJFOC-20120811004

PATIENT
  Age: 2 Year
  Sex: Female

DRUGS (2)
  1. IBUPROFEN [Suspect]
     Indication: PYREXIA
     Route: 048
  2. IBUPROFEN [Suspect]
     Indication: VIRAL INFECTION
     Route: 048

REACTIONS (5)
  - Pneumonia [Fatal]
  - Sepsis [Fatal]
  - Asphyxia [Fatal]
  - Dyspnoea [Fatal]
  - Respiratory arrest [None]
